FAERS Safety Report 8369012-X (Version None)
Quarter: 2012Q2

REPORT INFORMATION
  Report Type: 
  Country: None (occurrence: None)
  Receive Date: 20120518
  Receipt Date: 20120514
  Transmission Date: 20120825
  Serious: Yes (Other)
  Sender: FDA-Public Use
  Company Number: US-PFIZER INC-2012108269

PATIENT
  Sex: Female

DRUGS (6)
  1. LORTAB [Concomitant]
     Dosage: UNK
  2. LEVOTHYROXINE [Concomitant]
     Dosage: 175 MG, 1X/DAY
  3. PREMARIN [Concomitant]
     Dosage: UNK
  4. PRISTIQ [Suspect]
     Indication: DEPRESSION
     Dosage: 50 MG, 1X/DAY
     Route: 048
     Dates: start: 20120406, end: 20120428
  5. GABAPENTIN [Concomitant]
     Dosage: 400 MG, 3X/DAY
  6. TRAZODONE [Concomitant]
     Dosage: 150 MG, EVERY NIGHT/BEDTIME

REACTIONS (2)
  - HYPERTENSION [None]
  - PAIN [None]
